FAERS Safety Report 8447635-7 (Version None)
Quarter: 2012Q2

REPORT INFORMATION
  Report Type: 
  Country: None (occurrence: None)
  Receive Date: 20120619
  Receipt Date: 20120606
  Transmission Date: 20120825
  Serious: Yes (Death)
  Sender: FDA-Public Use
  Company Number: US-MYLANLABS-2010S1019158

PATIENT
  Age: 49 Year
  Sex: Male
  Weight: 135.63 kg

DRUGS (5)
  1. FENTANYL-100 [Suspect]
     Indication: BACK PAIN
     Route: 062
  2. HYDROCHLOROTHIAZIDE [Concomitant]
  3. OXYCODONE/ACETAMINOPHEN [Concomitant]
  4. METFORMIN HCL [Concomitant]
  5. CAPTOPRIL [Concomitant]

REACTIONS (2)
  - OVERDOSE [None]
  - TOXICITY TO VARIOUS AGENTS [None]
